FAERS Safety Report 6557185-0 (Version None)
Quarter: 2010Q1

REPORT INFORMATION
  Report Type: 
  Country: None (occurrence: None)
  Receive Date: 20100127
  Receipt Date: 20100127
  Transmission Date: 20100710
  Serious: Yes (Hospitalization)
  Sender: FDA-Public Use
  Company Number: None

PATIENT
  Age: 83 Year
  Sex: Male
  Weight: 59 kg

DRUGS (1)
  1. ALENDRONATE SODIUM [Suspect]
     Indication: OSTEOPOROSIS
     Dosage: 70 MG QWEEK PO
     Route: 048
     Dates: start: 20080723, end: 20091220

REACTIONS (5)
  - ANAEMIA [None]
  - GASTRIC HAEMORRHAGE [None]
  - HIATUS HERNIA [None]
  - OESOPHAGEAL DISORDER [None]
  - OESOPHAGITIS [None]
